FAERS Safety Report 4816268-3 (Version None)
Quarter: 2005Q4

REPORT INFORMATION
  Report Type: 
  Country: None (occurrence: None)
  Receive Date: 20051028
  Receipt Date: 20051017
  Transmission Date: 20060501
  Serious: Yes (Death)
  Sender: FDA-Public Use
  Company Number: US016049

PATIENT
  Age: 31 Year
  Sex: Male
  Weight: 58.2 kg

DRUGS (1)
  1. TRISENOX [Suspect]
     Indication: TESTICULAR GERM CELL CANCER
     Dosage: 14.55 MG/KG QD INTRAVENOUS DRIP
     Route: 041
     Dates: start: 20030721, end: 20030723

REACTIONS (5)
  - ACUTE RESPIRATORY DISTRESS SYNDROME [None]
  - ANXIETY [None]
  - HAEMOPTYSIS [None]
  - NEOPLASM PROGRESSION [None]
  - PYREXIA [None]
